FAERS Safety Report 14648441 (Version 2)
Quarter: 2018Q1

REPORT INFORMATION
  Report Type: Spontaneous
  Country: CA (occurrence: CA)
  Receive Date: 20180316
  Receipt Date: 20180329
  Transmission Date: 20180509
  Serious: Yes (Death, Other)
  Sender: FDA-Public Use
  Company Number: CA-REGENERON PHARMACEUTICALS, INC.-2018-18157

PATIENT

DRUGS (6)
  1. EYLEA [Suspect]
     Active Substance: AFLIBERCEPT
     Indication: PRODUCT USED FOR UNKNOWN INDICATION
     Dosage: UNK (OD)
     Route: 031
     Dates: start: 20170330, end: 20180110
  2. EYLEA [Suspect]
     Active Substance: AFLIBERCEPT
     Dosage: UNK UNK, ONCE (OD)
     Route: 031
     Dates: start: 20170727, end: 20170727
  3. EYLEA [Suspect]
     Active Substance: AFLIBERCEPT
     Dosage: UNK UNK, ONCE ((OD - LAST INJECTION)
     Route: 031
     Dates: start: 20180110, end: 20180110
  4. EYLEA [Suspect]
     Active Substance: AFLIBERCEPT
     Dosage: UNK UNK, ONCE (OD)
     Route: 031
     Dates: start: 20170427, end: 20170427
  5. EYLEA [Suspect]
     Active Substance: AFLIBERCEPT
     Dosage: UNK UNK, ONCE (OD)
     Route: 031
     Dates: start: 20171012, end: 20171012
  6. EYLEA [Suspect]
     Active Substance: AFLIBERCEPT
     Dosage: UNK UNK, ONCE (OD)
     Route: 031
     Dates: start: 20170525, end: 20170525

REACTIONS (1)
  - Neoplasm malignant [Fatal]
